FAERS Safety Report 4822667-6 (Version None)
Quarter: 2005Q4

REPORT INFORMATION
  Report Type: 
  Country: None (occurrence: None)
  Receive Date: 20051108
  Receipt Date: 20051103
  Transmission Date: 20060501
  Serious: Yes (Other)
  Sender: FDA-Public Use
  Company Number: US-GLAXOSMITHKLINE-A0580776A

PATIENT
  Sex: Female

DRUGS (6)
  1. ADVAIR DISKUS 100/50 [Suspect]
     Indication: ASTHMA
  2. FLOVENT [Suspect]
     Indication: ASTHMA
     Route: 055
  3. COMBIVENT [Concomitant]
  4. ACCOLATE [Concomitant]
  5. BRETHAIRE [Concomitant]
  6. THEO-DUR [Concomitant]

REACTIONS (10)
  - ASTHMA [None]
  - CHEST DISCOMFORT [None]
  - CHOKING [None]
  - COUGH [None]
  - LIMB INJURY [None]
  - PNEUMONIA [None]
  - RASH [None]
  - SNEEZING [None]
  - SUFFOCATION FEELING [None]
  - WHEEZING [None]
